FAERS Safety Report 5736804-2 (Version None)
Quarter: 2008Q2

REPORT INFORMATION
  Report Type: 
  Country: None (occurrence: None)
  Receive Date: 20080513
  Receipt Date: 20060411
  Transmission Date: 20081010
  Serious: Yes (Death)
  Sender: FDA-Public Use
  Company Number: PL-ABBOTT-08P-129-0451402-00

PATIENT
  Sex: Male
  Weight: 105 kg

DRUGS (15)
  1. SIBUTRAMINE (LEAD-IN) [Suspect]
     Indication: OBESITY
     Route: 048
     Dates: start: 20031209
  2. METOPROLOL TARTRATE [Concomitant]
     Indication: CORONARY ARTERY DISEASE
     Dates: start: 20020101, end: 20031215
  3. METOPROLOL TARTRATE [Concomitant]
     Indication: HYPERTENSION
  4. AMILORIDE HCL AND HYDROCHLOROTHIAZIDE [Concomitant]
     Indication: HYPERTENSION
     Dosage: 25 MG /2.5 MG
     Dates: start: 20020101, end: 20031215
  5. PERINDOPRIL ERBUMINE [Concomitant]
     Indication: HYPERTENSION
     Dates: start: 20031118, end: 20031215
  6. PERINDOPRIL ERBUMINE [Concomitant]
     Indication: CORONARY ARTERY DISEASE
  7. AMLODIPINE [Concomitant]
     Indication: HYPERTENSION
     Dates: start: 20020101, end: 20031215
  8. AMLODIPINE [Concomitant]
     Indication: CORONARY ARTERY DISEASE
  9. ACETYLSALICYLIC ACID SRT [Concomitant]
     Indication: ANTIPLATELET THERAPY
     Dates: start: 20031118, end: 20031215
  10. ACETYLSALICYLIC ACID SRT [Concomitant]
     Indication: CORONARY ARTERY DISEASE
  11. TICLOPIDINE HCL [Concomitant]
     Indication: ANTIPLATELET THERAPY
     Dates: start: 20031118, end: 20031215
  12. TICLOPIDINE HCL [Concomitant]
     Indication: CORONARY ARTERY DISEASE
  13. ISOSORBIDE MONONITRATE [Concomitant]
     Indication: CORONARY ARTERY DISEASE
     Dates: start: 20000101, end: 20031215
  14. ATORVASTATIN CALCIUM [Concomitant]
     Indication: MIXED HYPERLIPIDAEMIA
     Dates: start: 20031114, end: 20031215
  15. FENOFIBRATE [Concomitant]
     Indication: MIXED HYPERLIPIDAEMIA
     Dates: start: 20031113, end: 20031215

REACTIONS (1)
  - CARDIO-RESPIRATORY ARREST [None]
